FAERS Safety Report 25006231 (Version 1)
Quarter: 2025Q1

REPORT INFORMATION
  Report Type: Spontaneous
  Country: US (occurrence: US)
  Receive Date: 20250224
  Receipt Date: 20250224
  Transmission Date: 20250409
  Serious: No
  Sender: APELLIS PHARMACEUTICALS
  Company Number: US-APELLIS-2025-APL-0000783

PATIENT

DRUGS (2)
  1. SYFOVRE [Suspect]
     Active Substance: PEGCETACOPLAN
     Indication: Dry age-related macular degeneration
  2. VABYSMO [Concomitant]
     Active Substance: FARICIMAB-SVOA
     Indication: Neovascular age-related macular degeneration

REACTIONS (4)
  - Blindness unilateral [Not Recovered/Not Resolved]
  - Neovascular age-related macular degeneration [Unknown]
  - Visual impairment [Not Recovered/Not Resolved]
  - Product dose omission issue [Unknown]
